FAERS Safety Report 15786768 (Version 1)
Quarter: 2019Q1

REPORT INFORMATION
  Report Type: Spontaneous
  Country: CN (occurrence: CN)
  Receive Date: 20190103
  Receipt Date: 20190103
  Transmission Date: 20190417
  Serious: Yes (Other)
  Sender: FDA-Public Use
  Company Number: CN-009507513-1812CHN012761

PATIENT
  Age: 76 Year
  Sex: Male
  Weight: 46 kg

DRUGS (18)
  1. PIPERACILLIN AND TAZOBACTAM [Concomitant]
     Active Substance: PIPERACILLIN SODIUM\TAZOBACTAM SODIUM
     Dosage: 4.5 MILLIGRAM, Q8H; DAY 12-18 AFTER ADMISSION
     Route: 041
  2. SODIUM CHLORIDE. [Concomitant]
     Active Substance: SODIUM CHLORIDE
     Dosage: 100 MILLILITER, Q12H; DAY 19 AFTER ADMISSION
     Route: 041
  3. TIGECYCLINE. [Concomitant]
     Active Substance: TIGECYCLINE
     Dosage: 50 MILLIGRAM, BID; DAY 4-11 AFTER ADMISSION
     Route: 041
  4. CASPOFUNGIN ACETATE. [Concomitant]
     Active Substance: CASPOFUNGIN ACETATE
     Indication: ASPERGILLUS INFECTION
     Dosage: 50 MILLIGRAM, QD; DAY 12-18 AFTER ADMISSION
     Route: 041
  5. VORICONAZOLE. [Concomitant]
     Active Substance: VORICONAZOLE
     Indication: ASPERGILLUS INFECTION
     Dosage: 200 MILLIGRAM, Q12H; DAY 19 AFTER ADMISSION
     Route: 041
  6. SODIUM CHLORIDE. [Concomitant]
     Active Substance: SODIUM CHLORIDE
     Dosage: 250 MILLILITER, QD
     Route: 041
  7. CEFOPERAZONE SODIUM (+) SULBACTAM SODIUM [Concomitant]
     Active Substance: CEFOPERAZONE SODIUM\SULBACTAM SODIUM
     Indication: ANTI-INFECTIVE THERAPY
     Dosage: 3 GRAM, Q12H; DAY 1-11 AFTER ADMISSION
     Route: 041
  8. PIPERACILLIN AND TAZOBACTAM [Concomitant]
     Active Substance: PIPERACILLIN SODIUM\TAZOBACTAM SODIUM
     Dosage: 3.375 GRAM, Q8H; DAY 28-33 AFTER ADMISSION
     Route: 041
  9. SODIUM CHLORIDE. [Concomitant]
     Active Substance: SODIUM CHLORIDE
     Dosage: 250 MILLILITER, Q8H
     Route: 041
  10. SODIUM CHLORIDE. [Concomitant]
     Active Substance: SODIUM CHLORIDE
     Dosage: 250 MILLILITER, Q12H
     Route: 041
  11. VORICONAZOLE. [Concomitant]
     Active Substance: VORICONAZOLE
     Dosage: 200 MILLIGRAM, Q12H
     Route: 048
  12. SODIUM CHLORIDE. [Concomitant]
     Active Substance: SODIUM CHLORIDE
     Dosage: 100 MILLILITER, Q12H
     Route: 041
  13. MOXIFLOXACIN. [Concomitant]
     Active Substance: MOXIFLOXACIN
     Indication: ANTI-INFECTIVE THERAPY
     Dosage: 0.4 GRAM, QD; DAY 1-13 AFTER ADMISSION
     Route: 041
  14. VORICONAZOLE. [Concomitant]
     Active Substance: VORICONAZOLE
     Dosage: 200 MILLIGRAM, Q12H; DAY 28-33 AFTER ADMISSION
     Route: 041
  15. SODIUM CHLORIDE. [Concomitant]
     Active Substance: SODIUM CHLORIDE
     Dosage: 100 MILLILITER, BID
     Route: 041
  16. TIENAM [Suspect]
     Active Substance: CILASTATIN SODIUM\IMIPENEM
     Indication: LUNG INFECTION
     Dosage: 0.5 MILLIGRAM, Q8H; DAY 19 AFTER ADMISSION
     Route: 041
  17. AMBROXOL HYDROCHLORIDE [Concomitant]
     Active Substance: AMBROXOL HYDROCHLORIDE
     Dosage: 30 MILLIGRAM, BID; DAY 1-33 AFTER ADMISSION
     Route: 041
  18. SODIUM CHLORIDE. [Concomitant]
     Active Substance: SODIUM CHLORIDE
     Dosage: 100 MILLILITER, Q12H; DAY 28-33 AFTER ADMISSION
     Route: 041

REACTIONS (1)
  - Epilepsy [Recovered/Resolved]
